FAERS Safety Report 6758243-8 (Version None)
Quarter: 2010Q2

REPORT INFORMATION
  Report Type: 
  Country: None (occurrence: None)
  Receive Date: 20100607
  Receipt Date: 20100531
  Transmission Date: 20101027
  Serious: Yes (Hospitalization)
  Sender: FDA-Public Use
  Company Number: JP-ELI_LILLY_AND_COMPANY-JP201005001493

PATIENT
  Sex: Male
  Weight: 56.5 kg

DRUGS (6)
  1. GEMCITABINE HYDROCHLORIDE [Suspect]
     Indication: PANCREATIC CARCINOMA NON-RESECTABLE
     Dosage: 1000 MG/M2, UNK
     Route: 042
     Dates: start: 20081226, end: 20100409
  2. CANDESARTAN CILEXETIL [Concomitant]
     Indication: HYPERTENSION
     Dosage: 4 MG, UNK
     Route: 048
  3. CANDESARTAN CILEXETIL [Concomitant]
     Dosage: 8 MG, UNK
     Route: 048
  4. ZYLORIC [Concomitant]
     Indication: HYPERURICAEMIA
     Dosage: 100 MG, 2/D
     Route: 048
  5. LENDORMIN [Concomitant]
     Indication: INSOMNIA
     Dosage: 0.25 MG, AS NEEDED
     Route: 048
  6. CONIEL [Concomitant]
     Indication: HYPERTENSION
     Dosage: 2 MG, DAILY (1/D)
     Route: 048

REACTIONS (1)
  - ANAEMIA [None]
